FAERS Safety Report 25764715 (Version 1)
Quarter: 2025Q3

REPORT INFORMATION
  Report Type: Spontaneous
  Country: CN (occurrence: CN)
  Receive Date: 20250905
  Receipt Date: 20250905
  Transmission Date: 20251020
  Serious: Yes (Other)
  Sender: DECIPHERA PHARMACEUTICALS
  Company Number: CN-DECIPHERA PHARMACEUTICALS LLC-2025CN001088

PATIENT
  Age: 40 Year
  Sex: Male

DRUGS (5)
  1. QINLOCK [Suspect]
     Active Substance: RIPRETINIB
     Indication: Gastrointestinal stromal tumour
     Dates: start: 20230113, end: 202306
  2. QINLOCK [Suspect]
     Active Substance: RIPRETINIB
     Dates: start: 202307
  3. FLUZOPARIB [Suspect]
     Active Substance: FLUZOPARIB
     Indication: Gastrointestinal stromal tumour
     Dates: start: 20230113, end: 202306
  4. FLUZOPARIB [Suspect]
     Active Substance: FLUZOPARIB
     Dates: start: 202307, end: 202309
  5. PAMIPARIB [Suspect]
     Active Substance: PAMIPARIB
     Indication: Gastrointestinal stromal tumour
     Dates: start: 202309

REACTIONS (3)
  - Colonic fistula [Unknown]
  - Gastrointestinal haemorrhage [Unknown]
  - Haemoglobin decreased [Unknown]

NARRATIVE: CASE EVENT DATE: 20230101
